FAERS Safety Report 11377978 (Version 2)
Quarter: 2015Q3

REPORT INFORMATION
  Report Type: Spontaneous
  Country: US (occurrence: US)
  Receive Date: 20150811
  Receipt Date: 20150903
  Transmission Date: 20151125
  Serious: No
  Sender: FDA-Public Use
  Company Number: US-ELI_LILLY_AND_COMPANY-US200912002334

PATIENT
  Sex: Female

DRUGS (5)
  1. HUMULIN N [Suspect]
     Active Substance: INSULIN HUMAN
  2. HUMULIN N [Suspect]
     Active Substance: INSULIN HUMAN
  3. METFORMIN [Concomitant]
     Active Substance: METFORMIN HYDROCHLORIDE
  4. HUMALOG [Suspect]
     Active Substance: INSULIN LISPRO
     Dates: start: 2001
  5. HUMALOG [Suspect]
     Active Substance: INSULIN LISPRO

REACTIONS (4)
  - Urine odour abnormal [Not Recovered/Not Resolved]
  - Abdominal pain upper [Recovered/Resolved]
  - Skin burning sensation [Not Recovered/Not Resolved]
  - Arthritis [Not Recovered/Not Resolved]

NARRATIVE: CASE EVENT DATE: 2005
